FAERS Safety Report 25119729 (Version 1)
Quarter: 2025Q1

REPORT INFORMATION
  Report Type: Spontaneous
  Country: GB (occurrence: GB)
  Receive Date: 20250325
  Receipt Date: 20250325
  Transmission Date: 20250409
  Serious: Yes (Disabling)
  Sender: TEVA
  Company Number: GB-MHRA-TPP5151736C8998263YC1741962407239

PATIENT
  Age: 51 Year
  Sex: Female
  Weight: 99 kg

DRUGS (10)
  1. RAMIPRIL [Suspect]
     Active Substance: RAMIPRIL
     Indication: Ill-defined disorder
     Route: 065
     Dates: start: 20250120, end: 20250314
  2. HYDROXOCOBALAMIN [Concomitant]
     Active Substance: HYDROXOCOBALAMIN
     Indication: Vitamin B12 deficiency
     Route: 065
     Dates: start: 20250120, end: 20250121
  3. LEVOTHYROXINE [Concomitant]
     Active Substance: LEVOTHYROXINE
     Indication: Hypothyroidism
     Dosage: TAKE ONE EACH MORNING FOR HYPOTHYROIDISM
     Route: 065
     Dates: start: 20240501
  4. FUROSEMIDE [Concomitant]
     Active Substance: FUROSEMIDE
     Indication: Ill-defined disorder
     Dosage: TAKE ONE EACH MORNING TO REMOVE FLUID FROM THE ...
     Route: 065
     Dates: start: 20240326
  5. AVEENO [Concomitant]
     Active Substance: DIMETHICONE\HOMOSALATE\OCTINOXATE\OCTISALATE\TITANIUM DIOXIDE
     Indication: Ill-defined disorder
     Dosage: USE TWICE DAILY
     Route: 065
     Dates: start: 20250210, end: 20250310
  6. AMOXICILLIN [Concomitant]
     Active Substance: AMOXICILLIN
     Indication: Ill-defined disorder
     Route: 065
     Dates: start: 20241216, end: 20241221
  7. AMLODIPINE [Concomitant]
     Active Substance: AMLODIPINE BESYLATE
     Indication: Blood pressure decreased
     Dosage: TAKE ONE DAILY TO LOWER BLOOD PRESSURE
     Route: 065
     Dates: start: 20250314
  8. LANSOPRAZOLE [Concomitant]
     Active Substance: LANSOPRAZOLE
     Indication: Ill-defined disorder
     Dosage: TAKE ONE ONCE DAILY
     Route: 065
     Dates: start: 20240326
  9. PROMETHAZINE HYDROCHLORIDE [Concomitant]
     Active Substance: PROMETHAZINE HYDROCHLORIDE
     Indication: Ill-defined disorder
     Dosage: TAKE ONE UP TO TWO TABLETS AT NIGHT
     Route: 065
     Dates: start: 20250108, end: 20250122
  10. ESTRIOL [Concomitant]
     Active Substance: ESTRIOL
     Indication: Ill-defined disorder
     Dosage: INSERT ONE APPLICATORFUL EACH NIGHT UNTIL IMPRO...
     Route: 065
     Dates: start: 20250108, end: 20250205

REACTIONS (1)
  - Cough [Recovering/Resolving]
